FAERS Safety Report 19026086 (Version 1)
Quarter: 2021Q1

REPORT INFORMATION
  Report Type: Spontaneous
  Country: US (occurrence: US)
  Receive Date: 20210316
  Receipt Date: 20210316
  Transmission Date: 20210420
  Serious: Yes (Hospitalization)
  Sender: FDA-Public Use
  Company Number: None

PATIENT
  Age: 54 Year
  Sex: Male

DRUGS (1)
  1. COSENTYX [Suspect]
     Active Substance: SECUKINUMAB
     Indication: PSORIATIC ARTHROPATHY
     Dosage: ?          OTHER FREQUENCY:Q4WKS ;?
     Route: 058
     Dates: start: 20200226

REACTIONS (13)
  - Heart rate increased [None]
  - SARS-CoV-2 test positive [None]
  - Oropharyngeal pain [None]
  - Sleep apnoea syndrome [None]
  - Burning sensation [None]
  - Product dose omission issue [None]
  - Pain [None]
  - Psoriasis [None]
  - Neuropathy peripheral [None]
  - Atrial fibrillation [None]
  - Hypertension [None]
  - Chest pain [None]
  - Cough [None]
